FAERS Safety Report 9534743 (Version 2)
Quarter: 2013Q3

REPORT INFORMATION
  Report Type: Spontaneous
  Country: US (occurrence: US)
  Receive Date: 20130918
  Receipt Date: 20130918
  Transmission Date: 20140515
  Serious: No
  Sender: FDA-Public Use
  Company Number: US-PURDUE-USA-2011-0077274

PATIENT
  Age: 37 Year
  Sex: Female
  Weight: 55.78 kg

DRUGS (1)
  1. BUTRANS [Suspect]
     Indication: PAIN
     Dosage: 10 MCG, Q1H
     Route: 062
     Dates: start: 20110729, end: 20111017

REACTIONS (3)
  - Application site discolouration [Unknown]
  - Application site vesicles [Unknown]
  - Application site rash [Not Recovered/Not Resolved]
